FAERS Safety Report 4905391-0 (Version None)
Quarter: 2006Q1

REPORT INFORMATION
  Report Type: 
  Country: None (occurrence: None)
  Receive Date: 20060207
  Receipt Date: 20060207
  Transmission Date: 20060701
  Serious: Yes (Other)
  Sender: FDA-Public Use
  Company Number: None

PATIENT
  Age: 51 Year
  Sex: Male
  Weight: 86.1834 kg

DRUGS (1)
  1. ZICAM  NA         ZICAM LLC PHOENIX, ARIZONA 85016 [Suspect]
     Indication: NASOPHARYNGITIS
     Dosage: 1 PUMP IN EACH NOSTRIL   ONCE EVERY 4 HOURS   NASAL
     Route: 045
     Dates: start: 20041219, end: 20041224

REACTIONS (2)
  - DYSGEUSIA [None]
  - PAROSMIA [None]
